FAERS Safety Report 5305432-5 (Version None)
Quarter: 2007Q2

REPORT INFORMATION
  Report Type: 
  Country: None (occurrence: None)
  Receive Date: 20070416
  Receipt Date: 20070403
  Transmission Date: 20071010
  Serious: Yes (Other)
  Sender: FDA-Public Use
  Company Number: 2007314283

PATIENT
  Age: 60 Year
  Sex: Male

DRUGS (1)
  1. BENADRYL [Suspect]
     Dosage: 1 PILL EVERY DAY FOR YEARS (1 IN 1 D), ORAL
     Route: 048
     Dates: end: 20070330

REACTIONS (3)
  - CEREBROVASCULAR ACCIDENT [None]
  - DYSURIA [None]
  - RASH [None]
